FAERS Safety Report 9413311 (Version 1)
Quarter: 2013Q2

REPORT INFORMATION
  Report Type: Spontaneous
  Country: US (occurrence: None)
  Receive Date: 20130603
  Receipt Date: 20130603
  Transmission Date: 20140414
  Serious: Yes (Other)
  Sender: FDA-Public Use
  Company Number: 2013P1003514

PATIENT
  Age: 50 Year
  Sex: Male

DRUGS (3)
  1. DURAMORPH [Suspect]
     Indication: POST LAMINECTOMY SYNDROME
     Route: 037
  2. DURAMORPH [Suspect]
     Indication: PAIN
     Route: 037
  3. MORPHINE [Suspect]
     Route: 037

REACTIONS (7)
  - Device malfunction [None]
  - Hyperhidrosis [None]
  - Pallor [None]
  - Asthenia [None]
  - Hypersomnia [None]
  - Influenza like illness [None]
  - Mental status changes [None]
